FAERS Safety Report 10192892 (Version 1)
Quarter: 2014Q2

REPORT INFORMATION
  Report Type: Spontaneous
  Country: US (occurrence: US)
  Receive Date: 20140523
  Receipt Date: 20140523
  Transmission Date: 20141212
  Serious: Yes (Hospitalization)
  Sender: FDA-Public Use
  Company Number: US-B.I. PHARMACEUTICALS,INC./RIDGEFIELD-2014-BI-22181BP

PATIENT
  Sex: Female
  Weight: 90 kg

DRUGS (16)
  1. SPIRIVA [Suspect]
     Indication: CHRONIC OBSTRUCTIVE PULMONARY DISEASE
     Dosage: 18 MCG
     Route: 055
     Dates: start: 2009
  2. FISH OIL [Concomitant]
     Indication: ROUTINE HEALTH MAINTENANCE
     Dosage: 100 MG
     Route: 048
  3. ASPIRIN [Concomitant]
     Indication: MYOCARDIAL INFARCTION
     Dosage: 81 MG
     Route: 048
     Dates: start: 1997
  4. CLOPIDOGREL [Concomitant]
     Indication: MYOCARDIAL INFARCTION
     Dosage: 75 MG
     Route: 048
     Dates: start: 1997
  5. VITAMIN D [Concomitant]
     Indication: ROUTINE HEALTH MAINTENANCE
     Dosage: STRENGTH: 2000 UNITS; DAILY DOSE: 2000 UNITS
     Route: 048
  6. TRAZADONE [Concomitant]
     Indication: SLEEP DISORDER
     Route: 048
  7. ATORVASTATIN [Concomitant]
     Indication: BLOOD CHOLESTEROL INCREASED
     Dosage: 80 MG
     Route: 048
  8. FAMOTIDINE [Concomitant]
     Indication: GASTRIC DISORDER
     Dosage: 80 MG
     Route: 048
  9. ATENOLOL [Concomitant]
     Indication: HYPERTENSION
     Dosage: 75 MG
     Route: 048
  10. VENLAFAXINE [Concomitant]
     Indication: DEPRESSION
     Dosage: 225 MG
     Route: 048
  11. PANTOPRAZOLE [Concomitant]
     Indication: GASTRIC DISORDER
     Dosage: 80 MG
     Route: 048
  12. FUROSEMIDE [Concomitant]
     Indication: LOCAL SWELLING
     Dosage: 20 MG
     Route: 048
  13. FUROSEMIDE [Concomitant]
     Indication: LOCAL SWELLING
  14. CARBIDOPA/LEVIDOPA [Concomitant]
     Indication: PARKINSON^S DISEASE
     Dosage: STRENGTH: 25/100 MG; DAILY DOSE: 50 MG/200 MG
     Route: 048
  15. TOPIRAMATE [Concomitant]
     Indication: NEUROPATHY PERIPHERAL
     Dosage: 25 MG
     Route: 048
  16. GABAPENTIN [Concomitant]
     Indication: NEUROPATHY PERIPHERAL
     Dosage: 2400 MG
     Route: 048

REACTIONS (2)
  - Coronary artery disease [Recovered/Resolved]
  - Dry mouth [Not Recovered/Not Resolved]
